FAERS Safety Report 9519044 (Version 1)
Quarter: 2013Q1

REPORT INFORMATION
  Report Type: Spontaneous
  Country: US (occurrence: None)
  Receive Date: 20130305
  Receipt Date: 20130305
  Transmission Date: 20140127
  Serious: Yes (Other)
  Sender: FDA-Public Use
  Company Number: 163-21880-12040811

PATIENT
  Age: 56 Year
  Sex: Male

DRUGS (6)
  1. REVLIMID [Suspect]
     Indication: PLASMA CELL MYELOMA
     Dosage: 25 MG, 21 IN 28 D, PO
     Route: 048
     Dates: start: 20120210
  2. NORVASC (AMLODIPINE BESILATE) (UNKNOWN) [Concomitant]
  3. CYMBATA (DULOXETINE HYDOCHLORIDE) (UNKNOWN) [Concomitant]
  4. MORPHINE (MORPHINE) (UNKNOWN) (MORPHINE) [Concomitant]
  5. OXYCODONE (OXYCODONE) (UNKNOWN) (OXYCODONE) [Concomitant]
  6. LYRICA (PREGABALIN) (UNKNOWN) [Concomitant]

REACTIONS (7)
  - Disturbance in attention [None]
  - Dizziness [None]
  - Oedema peripheral [None]
  - Asthenia [None]
  - Fatigue [None]
  - Drug dose omission [None]
  - Flank pain [None]
